FAERS Safety Report 24276285 (Version 1)
Quarter: 2024Q3

REPORT INFORMATION
  Report Type: Spontaneous
  Country: GB (occurrence: GB)
  Receive Date: 20240903
  Receipt Date: 20240903
  Transmission Date: 20241017
  Serious: Yes (Other)
  Sender: Carnegie Pharmaceuticals
  Company Number: GB-CARNEGIE-000026

PATIENT
  Age: 48 Year
  Sex: Female

DRUGS (3)
  1. LATANOPROST [Suspect]
     Active Substance: LATANOPROST
     Indication: Ocular hypertension
     Route: 065
  2. LATANOPROST [Suspect]
     Active Substance: LATANOPROST
     Indication: Intraocular pressure test
     Route: 065
  3. LATANOPROST [Suspect]
     Active Substance: LATANOPROST
     Indication: Ocular surface disease
     Route: 065

REACTIONS (3)
  - Ocular surface disease [Recovered/Resolved]
  - Conjunctival hyperaemia [Recovered/Resolved]
  - Meibomian gland dysfunction [Recovered/Resolved]
